FAERS Safety Report 6110197-3 (Version None)
Quarter: 2009Q1

REPORT INFORMATION
  Report Type: 
  Country: None (occurrence: None)
  Receive Date: 20090310
  Receipt Date: 20090303
  Transmission Date: 20090719
  Serious: Yes (Life-Threatening)
  Sender: FDA-Public Use
  Company Number: BR-BAYER-200913116LA

PATIENT
  Age: 31 Year
  Sex: Female
  Weight: 62 kg

DRUGS (5)
  1. CIPROFLOXACIN HCL [Suspect]
     Indication: SUICIDE ATTEMPT
     Route: 048
  2. DICLOFENAC SODIUM [Suspect]
     Indication: SUICIDE ATTEMPT
     Route: 048
  3. AMITRIPTYLINE [Suspect]
     Indication: SUICIDE ATTEMPT
     Route: 048
  4. FENAZOPIRIDINA [Suspect]
     Indication: SUICIDE ATTEMPT
     Route: 048
  5. MEFENAMIC ACID [Suspect]
     Indication: SUICIDE ATTEMPT
     Route: 048

REACTIONS (4)
  - MULTIPLE DRUG OVERDOSE INTENTIONAL [None]
  - POISONING [None]
  - SUICIDE ATTEMPT [None]
  - VOMITING [None]
